FAERS Safety Report 4398558-4 (Version None)
Quarter: 2004Q3

REPORT INFORMATION
  Report Type: 
  Country: None (occurrence: None)
  Receive Date: 20040712
  Receipt Date: 20040629
  Transmission Date: 20050211
  Serious: Yes (Hospitalization)
  Sender: FDA-Public Use
  Company Number: 2004221656DE

PATIENT
  Age: 51 Year
  Sex: Female

DRUGS (1)
  1. BEXTRA [Suspect]
     Indication: ARTHROPATHY
     Dosage: 20 MG, QD, ORAL
     Route: 048
     Dates: start: 20040623, end: 20040624

REACTIONS (3)
  - CONFUSIONAL STATE [None]
  - MUSCLE RIGIDITY [None]
  - STUPOR [None]
